FAERS Safety Report 10307523 (Version 1)
Quarter: 2014Q3

REPORT INFORMATION
  Report Type: Spontaneous
  Country: FR (occurrence: FR)
  Receive Date: 20140716
  Receipt Date: 20140716
  Transmission Date: 20150326
  Serious: Yes (Disabling)
  Sender: FDA-Public Use
  Company Number: FR-009507513-1407FRA005459

PATIENT
  Age: 79 Year
  Sex: Female

DRUGS (6)
  1. DIPROSTENE [Suspect]
     Active Substance: BETAMETHASONE DIPROPIONATE\BETAMETHASONE SODIUM PHOSPHATE
     Indication: BACK PAIN
     Dosage: UNK
     Route: 014
     Dates: start: 20140310, end: 20140310
  2. CALDINE [Concomitant]
  3. PROLIA [Suspect]
     Active Substance: DENOSUMAB
     Indication: OSTEOPOROSIS
     Dosage: 1 DF, ONCE
     Route: 058
     Dates: start: 20140310, end: 20140310
  4. LIPANTHYL [Concomitant]
     Active Substance: FENOFIBRATE
  5. PRETERAX (INDAPAMIDE (+) PERINDOPRIL ARGININE) [Concomitant]
  6. CALCIDOSE [Concomitant]
     Active Substance: CALCIUM CARBONATE

REACTIONS (7)
  - Dyskinesia [Not Recovered/Not Resolved]
  - Dysarthria [Not Recovered/Not Resolved]
  - Muscular weakness [Not Recovered/Not Resolved]
  - Balance disorder [Not Recovered/Not Resolved]
  - Fall [Not Recovered/Not Resolved]
  - Fracture [Not Recovered/Not Resolved]
  - Extrapyramidal disorder [Not Recovered/Not Resolved]

NARRATIVE: CASE EVENT DATE: 20140325
